FAERS Safety Report 9167444 (Version 1)
Quarter: 2013Q1

REPORT INFORMATION
  Report Type: Spontaneous
  Country: FR (occurrence: FR)
  Receive Date: 20130318
  Receipt Date: 20130318
  Transmission Date: 20140127
  Serious: Yes (Hospitalization, Other)
  Sender: FDA-Public Use
  Company Number: FR-JNJFOC-20130305690

PATIENT
  Age: 64 Year
  Sex: Male

DRUGS (4)
  1. XARELTO [Suspect]
     Indication: DEEP VEIN THROMBOSIS
     Route: 048
     Dates: start: 20130301
  2. ERYTHROPOIETIN [Concomitant]
     Indication: ANAEMIA OF MALIGNANT DISEASE
     Route: 065
  3. ERYTHROPOIETIN [Concomitant]
     Indication: LYMPHOMA
     Route: 065
  4. RITUXIMAB [Concomitant]
     Indication: LYMPHOMA
     Route: 065

REACTIONS (1)
  - Haemoglobin decreased [Recovering/Resolving]
